FAERS Safety Report 20539232 (Version 1)
Quarter: 2022Q1

REPORT INFORMATION
  Report Type: Spontaneous
  Country: US (occurrence: None)
  Receive Date: 20220302
  Receipt Date: 20220302
  Transmission Date: 20220423
  Serious: No
  Sender: FDA-Public Use
  Company Number: 2022A084350

PATIENT
  Age: 68 Year
  Sex: Female
  Weight: 90.7 kg

DRUGS (1)
  1. BREZTRI [Suspect]
     Active Substance: BUDESONIDE\FORMOTEROL\GLYCOPYRROLATE
     Indication: Chronic obstructive pulmonary disease
     Dosage: EVERY 12 HOURS
     Route: 055

REACTIONS (1)
  - Blood glucose increased [Not Recovered/Not Resolved]
